FAERS Safety Report 16239568 (Version 4)
Quarter: 2023Q1

REPORT INFORMATION
  Report Type: Spontaneous
  Country: US (occurrence: US)
  Receive Date: 20190425
  Receipt Date: 20230314
  Transmission Date: 20230418
  Serious: Yes (Other)
  Sender: FDA-Public Use
  Company Number: US-COOPERSURGICAL, INC.-US-2019CPS001172

PATIENT
  Age: 26 Year
  Sex: Female
  Weight: 64.399 kg

DRUGS (3)
  1. PARAGARD T 380A [Suspect]
     Active Substance: COPPER
     Indication: Contraception
     Dosage: UNK
     Route: 015
     Dates: start: 20151015, end: 2019
  2. BETAMETHASONE DIPROPIONATE [Concomitant]
     Active Substance: BETAMETHASONE DIPROPIONATE
     Indication: Eczema
     Dosage: UNK
     Route: 065
  3. MONTELUKAST [Concomitant]
     Active Substance: MONTELUKAST SODIUM
     Indication: Product used for unknown indication
     Dosage: UNK
     Route: 065

REACTIONS (13)
  - Injury associated with device [Unknown]
  - Deformity [Unknown]
  - Device breakage [Recovered/Resolved]
  - Foreign body in reproductive tract [Recovered/Resolved]
  - Complication of device removal [Recovered/Resolved]
  - Pain [Unknown]
  - Emotional distress [Unknown]
  - Reproductive complication associated with device [Unknown]
  - Economic problem [Unknown]
  - Anxiety [Unknown]
  - Device expulsion [Recovered/Resolved]
  - Device expulsion [Recovered/Resolved]
  - Discomfort [Unknown]

NARRATIVE: CASE EVENT DATE: 20190410
